FAERS Safety Report 9190059 (Version 6)
Quarter: 2013Q2

REPORT INFORMATION
  Report Type: Spontaneous
  Country: US (occurrence: US)
  Receive Date: 20130326
  Receipt Date: 20130531
  Transmission Date: 20140414
  Serious: Yes (Disabling, Other)
  Sender: FDA-Public Use
  Company Number: US-PFIZER INC-2013093032

PATIENT
  Age: 63 Year
  Sex: Female

DRUGS (8)
  1. PREMPRO [Suspect]
     Dosage: 1 DF (0.625/ 2.5), 1X/DAY
     Route: 048
  2. PRISTIQ [Suspect]
     Dosage: 50 MG, 3X/DAY
     Route: 048
  3. XALATAN [Suspect]
     Dosage: 1 GTT (0.005%), LEFT EYE, HOUR OF SLEEP
  4. NEURONTIN [Suspect]
     Dosage: 300 MG, 1 EVERY DAY BEFORE NOON, 2 EVERY DAY AFTER NOON
  5. PROTONIX [Suspect]
     Dosage: 40 MG, 1X/DAY
     Route: 048
  6. LISINOPRIL [Concomitant]
     Dosage: UNK
  7. TRAZODONE [Concomitant]
     Dosage: UNK
  8. BUSPIRONE [Concomitant]
     Dosage: UNK

REACTIONS (3)
  - Hydrocephalus [Unknown]
  - Amnesia [Unknown]
  - Memory impairment [Unknown]
